FAERS Safety Report 7569948-3 (Version None)
Quarter: 2011Q2

REPORT INFORMATION
  Report Type: 
  Country: None (occurrence: None)
  Receive Date: 20110624
  Receipt Date: 20110620
  Transmission Date: 20111010
  Serious: No
  Sender: FDA-Public Use
  Company Number: US-PFIZER INC-2011137067

PATIENT
  Sex: Male

DRUGS (2)
  1. SITAGLIPTIN AND METFORMIN HYDROCHLORIDE [Suspect]
     Dosage: UNK
  2. LIPITOR [Suspect]
     Dosage: 80 MG, UNK

REACTIONS (1)
  - PANCREATIC ENZYMES INCREASED [None]
